FAERS Safety Report 9617775 (Version 1)
Quarter: 2013Q4

REPORT INFORMATION
  Report Type: Spontaneous
  Country: IT (occurrence: None)
  Receive Date: 20131009
  Receipt Date: 20131009
  Transmission Date: 20140711
  Serious: Yes (Hospitalization)
  Sender: FDA-Public Use
  Company Number: VA;_02756_2013

PATIENT
  Age: 66 Year
  Sex: Male
  Weight: 76 kg

DRUGS (14)
  1. CIBACEN [Suspect]
     Indication: HYPERTENSION
     Route: 048
     Dates: start: 20070722, end: 201309
  2. ALLOPURINOL [Concomitant]
  3. CARDIOASPIRIN [Concomitant]
  4. CALCITRIOL [Concomitant]
  5. CARVIPRESS [Concomitant]
  6. LUCEN [Concomitant]
  7. MODURETIC [Concomitant]
  8. NOVONORM [Concomitant]
  9. SODIUM BICARBONATE [Concomitant]
  10. TORVAST [Concomitant]
  11. ARICEPT [Concomitant]
  12. TRIAZOLAM [Concomitant]
  13. VALDOXAN [Concomitant]
  14. SEROQUEL [Concomitant]

REACTIONS (3)
  - Rib fracture [None]
  - Renal impairment [None]
  - Condition aggravated [None]
